FAERS Safety Report 8487002-3 (Version None)
Quarter: 2012Q3

REPORT INFORMATION
  Report Type: 
  Country: None (occurrence: None)
  Receive Date: 20120704
  Receipt Date: 20120629
  Transmission Date: 20120928
  Serious: Yes (Hospitalization)
  Sender: FDA-Public Use
  Company Number: PHFR2012GB003775

PATIENT
  Sex: Female

DRUGS (1)
  1. CLOZAPINE [Suspect]

REACTIONS (2)
  - LUNG ABSCESS [None]
  - LOWER RESPIRATORY TRACT INFECTION [None]
